FAERS Safety Report 9500328 (Version 1)
Quarter: 2013Q1

REPORT INFORMATION
  Report Type: Spontaneous
  Country: US (occurrence: None)
  Receive Date: 20130107
  Receipt Date: 20130107
  Transmission Date: 20140127
  Serious: No
  Sender: FDA-Public Use
  Company Number: PHEH2012US022839

PATIENT
  Age: 26 Year
  Sex: Female
  Weight: 69.4 kg

DRUGS (1)
  1. GILENYA [Suspect]
     Indication: MULTIPLE SCLEROSIS
     Route: 048
     Dates: start: 20121024, end: 20121119

REACTIONS (3)
  - Emotional disorder [None]
  - Chest pain [None]
  - Weight increased [None]
